FAERS Safety Report 7278956-1 (Version None)
Quarter: 2011Q1

REPORT INFORMATION
  Report Type: 
  Country: None (occurrence: None)
  Receive Date: 20110207
  Receipt Date: 20110125
  Transmission Date: 20110831
  Serious: Yes (Hospitalization)
  Sender: FDA-Public Use
  Company Number: PHHY2011FR06942

PATIENT
  Sex: Male

DRUGS (4)
  1. RASILEZ [Suspect]
     Indication: CARDIAC FAILURE
     Dosage: 150 MG, QD
     Route: 048
     Dates: start: 20101031, end: 20101124
  2. TEMERIT [Concomitant]
     Indication: CARDIAC FAILURE
     Dosage: 5 MG, QD
     Route: 048
     Dates: start: 20101030, end: 20101124
  3. ALLOPURINOL [Concomitant]
     Indication: GOUT
     Dosage: 300 MG, QD
     Route: 048
     Dates: end: 20101124
  4. HALDOL [Concomitant]
     Indication: AGITATION
     Dosage: 1 DF, QD
     Route: 048
     Dates: start: 20101030, end: 20101109

REACTIONS (3)
  - NEUTROPHIL COUNT INCREASED [None]
  - AGRANULOCYTOSIS [None]
  - WHITE BLOOD CELL COUNT INCREASED [None]
